FAERS Safety Report 22061171 (Version 1)
Quarter: 2023Q1

REPORT INFORMATION
  Report Type: Spontaneous
  Country: DE (occurrence: DE)
  Receive Date: 20230303
  Receipt Date: 20230303
  Transmission Date: 20230418
  Serious: Yes (Death, Life-Threatening, Other)
  Sender: FDA-Public Use
  Company Number: None

PATIENT
  Sex: Female
  Weight: 55 kg

DRUGS (9)
  1. CITALOPRAM HYDROBROMIDE [Suspect]
     Active Substance: CITALOPRAM HYDROBROMIDE
     Indication: Product used for unknown indication
     Route: 048
     Dates: start: 20150227, end: 20181026
  2. CARBIDOPA\LEVODOPA [Suspect]
     Active Substance: CARBIDOPA\LEVODOPA
     Indication: Product used for unknown indication
     Dosage: 1 DF, QD
  3. SERTRALINE HYDROCHLORIDE [Suspect]
     Active Substance: SERTRALINE HYDROCHLORIDE
     Indication: Product used for unknown indication
     Route: 048
     Dates: start: 20150227, end: 20181026
  4. CARBIDOPA LEVODOPA [Suspect]
     Active Substance: CARBIDOPA\LEVODOPA
     Indication: Product used for unknown indication
     Dosage: 1 DF, Q8HR
     Route: 048
  5. PK-MERZ [Suspect]
     Active Substance: AMANTADINE
     Indication: Product used for unknown indication
     Dosage: 200 MG, QD
     Route: 048
     Dates: start: 20150227, end: 20181026
  6. BISOPROLOL FUMARATE [Suspect]
     Active Substance: BISOPROLOL FUMARATE
     Indication: Chest pain
     Dosage: 5 MG, QD
     Route: 048
     Dates: start: 20150227, end: 20181026
  7. BISOPROLOL FUMARATE [Suspect]
     Active Substance: BISOPROLOL FUMARATE
     Indication: Palpitations
  8. MIRTAZAPINE [Suspect]
     Active Substance: MIRTAZAPINE
     Indication: Product used for unknown indication
     Dosage: DIV.
     Route: 048
     Dates: start: 20150227
  9. CARBIDOPA [Concomitant]
     Active Substance: CARBIDOPA
     Route: 048
     Dates: start: 20150227, end: 20181026

REACTIONS (50)
  - Cardiac death [Fatal]
  - Oedema due to cardiac disease [Fatal]
  - Cardiotoxicity [Fatal]
  - Cardiac failure [Fatal]
  - Gaze palsy [Unknown]
  - Heat illness [Unknown]
  - Blood pressure decreased [Unknown]
  - Neurodegenerative disorder [Unknown]
  - Syncope [Unknown]
  - Hallucination [Unknown]
  - Disorientation [Unknown]
  - Reduced facial expression [Unknown]
  - Paresis [Unknown]
  - Peripheral coldness [Unknown]
  - Abnormal behaviour [Unknown]
  - Bradykinesia [Unknown]
  - Condition aggravated [Unknown]
  - Parkinsonism [Unknown]
  - Personality change [Unknown]
  - Nightmare [Unknown]
  - Nasopharyngitis [Unknown]
  - Exercise tolerance decreased [Unknown]
  - Therapy cessation [Unknown]
  - Eye movement disorder [Unknown]
  - Head injury [Unknown]
  - Speech disorder [Unknown]
  - Hypoaesthesia [Unknown]
  - Lipids abnormal [Unknown]
  - Amimia [Unknown]
  - Feeling hot [Unknown]
  - Language disorder [Unknown]
  - Muscular weakness [Unknown]
  - Liver function test abnormal [Unknown]
  - Asthenia [Unknown]
  - Dysphagia [Unknown]
  - Mood altered [Unknown]
  - Dyspnoea [Unknown]
  - Dry eye [Unknown]
  - Dizziness [Unknown]
  - Panic attack [Unknown]
  - Alopecia [Unknown]
  - Fatigue [Unknown]
  - Nausea [Unknown]
  - Depression [Unknown]
  - Vomiting [Unknown]
  - Anxiety disorder [Unknown]
  - Sleep disorder [Unknown]
  - Constipation [Unknown]
  - Confusional state [Unknown]
  - Visual impairment [Unknown]

NARRATIVE: CASE EVENT DATE: 20150101
